FAERS Safety Report 4950200-7 (Version None)
Quarter: 2006Q1

REPORT INFORMATION
  Report Type: 
  Country: None (occurrence: None)
  Receive Date: 20060322
  Receipt Date: 20060227
  Transmission Date: 20060701
  Serious: Yes (Hospitalization)
  Sender: FDA-Public Use
  Company Number: PHBS2006JP03360

PATIENT
  Age: 80 Year
  Sex: Female

DRUGS (11)
  1. LAMISIL [Suspect]
     Indication: NAIL TINEA
     Dosage: 125 MG/D
     Route: 048
     Dates: start: 20051026, end: 20060201
  2. BLOPRESS [Concomitant]
     Dosage: 8 MG/D
     Route: 048
  3. NORVASC [Concomitant]
     Dosage: 5 MG/D
     Route: 048
  4. OSTELUC [Concomitant]
     Dosage: 200 MG/D
     Route: 048
  5. RIZE [Concomitant]
     Dosage: 5 MG/D
     Route: 048
  6. GASTER [Concomitant]
     Dosage: 20 MG/D
     Route: 048
  7. GASTROM [Concomitant]
     Route: 048
  8. BUP-4 [Concomitant]
     Route: 048
  9. MYONAL [Concomitant]
     Route: 048
  10. MUCOSTA [Concomitant]
     Route: 048
  11. ONEALFA [Concomitant]
     Route: 048

REACTIONS (8)
  - ALANINE AMINOTRANSFERASE INCREASED [None]
  - ASPARTATE AMINOTRANSFERASE INCREASED [None]
  - BLOOD ALKALINE PHOSPHATASE INCREASED [None]
  - BLOOD BILIRUBIN INCREASED [None]
  - JAUNDICE [None]
  - LIVER DISORDER [None]
  - LIVER FUNCTION TEST ABNORMAL [None]
  - PANCREATIC CARCINOMA [None]
